FAERS Safety Report 6206616-4 (Version None)
Quarter: 2009Q2

REPORT INFORMATION
  Report Type: 
  Country: None (occurrence: None)
  Receive Date: 20090528
  Receipt Date: 20090522
  Transmission Date: 20091009
  Serious: Yes (Other)
  Sender: FDA-Public Use
  Company Number: US-JNJFOC-20090506007

PATIENT
  Age: 50 Year
  Sex: Female
  Weight: 93.9 kg

DRUGS (1)
  1. TOPAMAX [Suspect]
     Indication: MIGRAINE PROPHYLAXIS
     Route: 048

REACTIONS (4)
  - COGNITIVE DISORDER [None]
  - MEMORY IMPAIRMENT [None]
  - MOOD SWINGS [None]
  - VISION BLURRED [None]
